FAERS Safety Report 5432532-1 (Version None)
Quarter: 2007Q3

REPORT INFORMATION
  Report Type: 
  Country: None (occurrence: None)
  Receive Date: 20070831
  Receipt Date: 20070827
  Transmission Date: 20080115
  Serious: Yes (Death, Hospitalization)
  Sender: FDA-Public Use
  Company Number: PHBS2007US14213

PATIENT
  Age: 56 Year
  Sex: Male

DRUGS (5)
  1. CYCLOSPORINE [Suspect]
     Indication: RENAL TRANSPLANT
     Dosage: 100 MG, QD
     Route: 065
     Dates: start: 19990101
  2. MYCOPHENOLATE MOFETIL [Suspect]
     Indication: RENAL TRANSPLANT
     Dosage: 250 MG, BID
     Route: 065
  3. MYCOPHENOLATE MOFETIL [Suspect]
     Dosage: 750 MG, BID
     Route: 065
     Dates: start: 19990101
  4. PREDNISONE [Suspect]
     Indication: RENAL TRANSPLANT
     Dosage: 5 MG, QD
     Route: 065
     Dates: start: 19990101
  5. DACLIZUMAB [Concomitant]
     Indication: RENAL TRANSPLANT

REACTIONS (16)
  - CSF CELL COUNT INCREASED [None]
  - CSF PROTEIN INCREASED [None]
  - DIARRHOEA [None]
  - ELECTROENCEPHALOGRAM ABNORMAL [None]
  - GRAND MAL CONVULSION [None]
  - INTUBATION [None]
  - LUNG INFILTRATION [None]
  - MECHANICAL VENTILATION [None]
  - MENTAL STATUS CHANGES [None]
  - NAUSEA [None]
  - PNEUMONIA VIRAL [None]
  - PYREXIA [None]
  - STATUS EPILEPTICUS [None]
  - VIRUS SEROLOGY TEST POSITIVE [None]
  - VOMITING [None]
  - WEST NILE VIRAL INFECTION [None]
